FAERS Safety Report 8021218-5 (Version None)
Quarter: 2012Q1

REPORT INFORMATION
  Report Type: 
  Country: None (occurrence: None)
  Receive Date: 20120104
  Receipt Date: 20111226
  Transmission Date: 20120608
  Serious: Yes (Hospitalization)
  Sender: FDA-Public Use
  Company Number: PL-SP-2011-12632

PATIENT
  Age: 72 Year
  Sex: Male

DRUGS (1)
  1. TICE BCG [Suspect]
     Indication: BLADDER CANCER
     Route: 065
     Dates: start: 20070101, end: 20070101

REACTIONS (3)
  - EPIDIDYMITIS [None]
  - TESTICULAR SWELLING [None]
  - EPIDIDYMITIS TUBERCULOUS [None]
